FAERS Safety Report 9335628 (Version 1)
Quarter: 2013Q2

REPORT INFORMATION
  Report Type: Spontaneous
  Country: BE (occurrence: BE)
  Receive Date: 20130605
  Receipt Date: 20130605
  Transmission Date: 20140414
  Serious: Yes (Other)
  Sender: FDA-Public Use
  Company Number: BE-AMGEN-BELSP2013039178

PATIENT
  Age: 73 Year
  Sex: Male

DRUGS (4)
  1. NEULASTA [Suspect]
     Indication: LUNG NEOPLASM MALIGNANT
     Dosage: UNK
  2. NEUPOGEN [Suspect]
     Indication: LUNG NEOPLASM MALIGNANT
     Dosage: UNK
  3. CARBOPLATIN [Concomitant]
     Dosage: UNK
  4. ALIMTA [Concomitant]
     Dosage: UNK

REACTIONS (2)
  - Neutrophil count abnormal [Unknown]
  - Drug ineffective [Unknown]
